FAERS Safety Report 4775268-2 (Version None)
Quarter: 2005Q3

REPORT INFORMATION
  Report Type: 
  Country: None (occurrence: None)
  Receive Date: 20050922
  Receipt Date: 20040719
  Transmission Date: 20060218
  Serious: Yes (Hospitalization, Disabling)
  Sender: FDA-Public Use
  Company Number: GB-SP-2004-02375

PATIENT
  Age: 39 Year
  Sex: Male

DRUGS (2)
  1. IMMUCYST [Suspect]
     Indication: BLADDER CANCER
     Route: 043
     Dates: start: 20040416, end: 20040604
  2. IMMUCYST [Suspect]
     Route: 043
     Dates: start: 20040416, end: 20040604

REACTIONS (10)
  - ARTHRITIS [None]
  - DRY EYE [None]
  - ERYTHEMA [None]
  - FEELING HOT AND COLD [None]
  - HYPOKINESIA [None]
  - JOINT STIFFNESS [None]
  - NASOPHARYNGITIS [None]
  - OCULAR HYPERAEMIA [None]
  - PAIN [None]
  - SWELLING [None]
